FAERS Safety Report 5084470-4 (Version None)
Quarter: 2006Q3

REPORT INFORMATION
  Report Type: 
  Country: None (occurrence: None)
  Receive Date: 20060815
  Receipt Date: 20060808
  Transmission Date: 20061208
  Serious: Yes (Hospitalization)
  Sender: FDA-Public Use
  Company Number: TAP2006Q01196

PATIENT
  Age: 39 Year
  Sex: Female

DRUGS (2)
  1. LUPRON DEPOT-3 [Suspect]
     Indication: ENDOMETRIOSIS
     Dosage: 11.25 MG, ONCE, INTRAMUSCULAR
     Route: 030
     Dates: start: 20060616, end: 20060616
  2. PRENATAL VITAMIN (PRENATAL VITAMINS) [Concomitant]

REACTIONS (11)
  - ABORTION SPONTANEOUS [None]
  - ANAEMIA [None]
  - DRUG EXPOSURE DURING PREGNANCY [None]
  - ECTOPIC PREGNANCY [None]
  - HOT FLUSH [None]
  - HYPOTENSION [None]
  - NAUSEA [None]
  - NIGHT SWEATS [None]
  - POOR QUALITY SLEEP [None]
  - PREGNANCY [None]
  - WEIGHT INCREASED [None]
